FAERS Safety Report 19976031 (Version 1)
Quarter: 2021Q4

REPORT INFORMATION
  Report Type: Spontaneous
  Country: US (occurrence: US)
  Receive Date: 20211021
  Receipt Date: 20211021
  Transmission Date: 20220304
  Serious: No
  Sender: FDA-Public Use
  Company Number: US-SANOFI-00811099

PATIENT
  Age: 58 Year
  Sex: Male

DRUGS (2)
  1. DUPIXENT [Suspect]
     Active Substance: DUPILUMAB
     Indication: Asthma
     Dosage: 200 MG, QOW
  2. DUONEB [Concomitant]
     Active Substance: ALBUTEROL SULFATE\IPRATROPIUM BROMIDE
     Dosage: 5 TIMES DAILY

REACTIONS (6)
  - Eye pruritus [Unknown]
  - Eye disorder [Unknown]
  - Dry eye [Unknown]
  - Eye discharge [Unknown]
  - Conjunctivitis [Unknown]
  - Weight decreased [Unknown]
